FAERS Safety Report 16000734 (Version 1)
Quarter: 2019Q1

REPORT INFORMATION
  Report Type: Spontaneous
  Country: US (occurrence: US)
  Receive Date: 20190130
  Receipt Date: 20190130
  Transmission Date: 20190418
  Serious: No
  Sender: FDA-Public Use
  Company Number: None

PATIENT
  Age: 89 Year
  Sex: Male
  Weight: 70.31 kg

DRUGS (10)
  1. FE [Concomitant]
     Active Substance: IRON
  2. COUMADIN [Concomitant]
     Active Substance: WARFARIN SODIUM
  3. TYLENOL [Concomitant]
     Active Substance: ACETAMINOPHEN
  4. NORVASC [Concomitant]
     Active Substance: AMLODIPINE BESYLATE
  5. TOPRIL [Concomitant]
  6. CYANOCOBALAMIN. [Concomitant]
     Active Substance: CYANOCOBALAMIN
  7. VIT B 12 [Concomitant]
     Active Substance: CYANOCOBALAMIN
  8. FLUDROCORTISONE ACETATE. [Suspect]
     Active Substance: FLUDROCORTISONE ACETATE
     Indication: PRODUCT USED FOR UNKNOWN INDICATION
     Dosage: ?          QUANTITY:25 PILLS;?
     Route: 048
     Dates: start: 20190103, end: 20190107
  9. PLAVIX [Concomitant]
     Active Substance: CLOPIDOGREL BISULFATE
  10. VITAMIN D [Concomitant]
     Active Substance: CHOLECALCIFEROL

REACTIONS (2)
  - Arthralgia [None]
  - Eye pain [None]

NARRATIVE: CASE EVENT DATE: 20190103
